FAERS Safety Report 21860202 (Version 1)
Quarter: 2023Q1

REPORT INFORMATION
  Report Type: Spontaneous
  Country: US (occurrence: None)
  Receive Date: 20230113
  Receipt Date: 20230113
  Transmission Date: 20230417
  Serious: Yes (Hospitalization)
  Sender: FDA-Public Use
  Company Number: None

PATIENT
  Age: 72 Year
  Sex: Male
  Weight: 98 kg

DRUGS (1)
  1. ASMANEX [Suspect]
     Active Substance: MOMETASONE FUROATE
     Indication: Chronic obstructive pulmonary disease
     Dosage: OTHER STRENGTH : 220MCG/INHL;?OTHER QUANTITY : 1 PUFF;?FREQUENCY : TWICE A DAY;?
     Route: 048
     Dates: start: 20220803, end: 20221005

REACTIONS (6)
  - Pneumonia [None]
  - Nausea [None]
  - Dizziness [None]
  - Dizziness [None]
  - Eosinophil count increased [None]
  - Lung consolidation [None]

NARRATIVE: CASE EVENT DATE: 20221005
